FAERS Safety Report 25182720 (Version 1)
Quarter: 2025Q2

REPORT INFORMATION
  Report Type: Spontaneous
  Country: FR (occurrence: FR)
  Receive Date: 20250410
  Receipt Date: 20250410
  Transmission Date: 20250716
  Serious: Yes (Other)
  Sender: BAXTER
  Company Number: FR-BAXTER-2025BAX013646

PATIENT
  Age: 75 Year
  Sex: Female

DRUGS (2)
  1. PROPOFOL [Suspect]
     Active Substance: PROPOFOL
     Indication: Spondylolisthesis
     Route: 042
     Dates: start: 20250319
  2. PROPOFOL [Suspect]
     Active Substance: PROPOFOL
     Indication: Anaesthesia procedure

REACTIONS (2)
  - Drug ineffective [Unknown]
  - Memory impairment [Unknown]
